FAERS Safety Report 17910934 (Version 1)
Quarter: 2020Q2

REPORT INFORMATION
  Report Type: Spontaneous
  Country: US (occurrence: US)
  Receive Date: 20200618
  Receipt Date: 20200618
  Transmission Date: 20200714
  Serious: Yes (Death)
  Sender: FDA-Public Use
  Company Number: NVSC2020US168864

PATIENT
  Age: 42 Year
  Sex: Male

DRUGS (2)
  1. INSULIN [Concomitant]
     Active Substance: INSULIN NOS
     Indication: PRODUCT USED FOR UNKNOWN INDICATION
     Dosage: UNK
     Route: 065
  2. METFORMIN [Suspect]
     Active Substance: METFORMIN HYDROCHLORIDE
     Indication: PRODUCT USED FOR UNKNOWN INDICATION
     Dosage: 500 MG (15-20 G)
     Route: 065

REACTIONS (7)
  - Sepsis [Fatal]
  - Hypotension [Fatal]
  - Rhabdomyolysis [Fatal]
  - Lactic acidosis [Fatal]
  - Encephalopathy [Fatal]
  - Intentional overdose [Unknown]
  - Hyperthermia [Fatal]
